FAERS Safety Report 6862856-2 (Version None)
Quarter: 2010Q3

REPORT INFORMATION
  Report Type: 
  Country: None (occurrence: None)
  Receive Date: 20100721
  Receipt Date: 20100712
  Transmission Date: 20110219
  Serious: Yes (Hospitalization)
  Sender: FDA-Public Use
  Company Number: A0871212A

PATIENT
  Age: 54 Year
  Sex: Female

DRUGS (7)
  1. AUGMENTIN '125' [Suspect]
     Dosage: 800MG TWICE PER DAY
     Route: 048
     Dates: start: 20090530, end: 20090601
  2. BACTRIM DS [Suspect]
     Dosage: 1TAB PER DAY
     Route: 048
     Dates: start: 20090521, end: 20090530
  3. UNKNOWN [Suspect]
     Indication: BREAST CANCER
     Dosage: 1580MG EVERY 3 DAYS
     Route: 042
     Dates: start: 20081105
  4. EXEMESTANE [Suspect]
     Indication: BREAST CANCER
     Dosage: 25MG PER DAY
     Dates: start: 20081106
  5. LEXAPRO [Concomitant]
  6. VALSARTAN [Concomitant]
  7. CALCIUM WITH VITAMIN D [Concomitant]

REACTIONS (7)
  - ASTHENIA [None]
  - CLOSTRIDIUM DIFFICILE COLITIS [None]
  - DIARRHOEA [None]
  - NEUTROPHIL COUNT DECREASED [None]
  - PYREXIA [None]
  - RASH [None]
  - WHITE BLOOD CELL COUNT DECREASED [None]
